FAERS Safety Report 8050144-0 (Version None)
Quarter: 2012Q1

REPORT INFORMATION
  Report Type: 
  Country: None (occurrence: None)
  Receive Date: 20120117
  Receipt Date: 20120111
  Transmission Date: 20120608
  Serious: Yes (Hospitalization, Other)
  Sender: FDA-Public Use
  Company Number: US-MERCK-1104USA03723

PATIENT
  Age: 72 Year
  Sex: Female
  Weight: 54 kg

DRUGS (18)
  1. FOSAMAX [Suspect]
     Indication: OSTEOPENIA
     Route: 048
     Dates: start: 20080425, end: 20080701
  2. HYDROCHLOROTHIAZIDE [Concomitant]
     Route: 048
  3. OMEGA-3 MARINE TRIGLYCERIDES [Concomitant]
     Route: 065
     Dates: start: 20061201
  4. DITROPAN XL [Concomitant]
     Indication: URINARY INCONTINENCE
     Route: 065
  5. FOSAMAX PLUS D [Suspect]
     Indication: OSTEOPENIA
     Route: 048
     Dates: start: 20051201, end: 20070901
  6. MICARDIS [Concomitant]
     Route: 048
  7. ALENDRONATE SODIUM [Suspect]
     Indication: OSTEOPENIA
     Route: 048
     Dates: start: 20081010, end: 20090611
  8. ASPIRIN [Concomitant]
     Route: 048
  9. COREG [Concomitant]
     Route: 065
     Dates: start: 20070101
  10. FOSAMAX [Suspect]
     Indication: OSTEOPOROSIS
     Route: 048
     Dates: start: 20010401, end: 20050901
  11. LOTENSION (BENAZEPRIL HYDROCHLORIDE) [Concomitant]
     Route: 048
  12. ALENDRONATE SODIUM [Suspect]
     Route: 048
     Dates: start: 20091201
  13. PRAVACHOL [Concomitant]
     Route: 048
  14. FOSAMAX [Suspect]
     Route: 048
     Dates: end: 20080214
  15. FOSAMAX [Suspect]
     Route: 065
     Dates: start: 20000101
  16. PREMARIN [Concomitant]
     Route: 048
  17. FOSAMAX [Suspect]
     Route: 048
     Dates: start: 20001024, end: 20010412
  18. IRON (UNSPECIFIED) AND VITAMINS (UNSPECIFIED) [Concomitant]
     Route: 048

REACTIONS (37)
  - BLADDER DISORDER [None]
  - URINARY INCONTINENCE [None]
  - ANXIETY [None]
  - ARTHRITIS [None]
  - DRUG HYPERSENSITIVITY [None]
  - CARDIAC MURMUR [None]
  - ARTHROPATHY [None]
  - RECTOCELE [None]
  - ALLERGY TO VACCINE [None]
  - MUSCLE SPASMS [None]
  - HYPERSENSITIVITY [None]
  - HYPERLIPIDAEMIA [None]
  - PARAESTHESIA [None]
  - CYSTOCELE [None]
  - OSTEOARTHRITIS [None]
  - JOINT CONTRACTURE [None]
  - SPONDYLOLISTHESIS [None]
  - POLLAKIURIA [None]
  - URINARY TRACT INFECTION ENTEROCOCCAL [None]
  - DRUG INEFFECTIVE [None]
  - HYDRONEPHROSIS [None]
  - DEPRESSION [None]
  - URGE INCONTINENCE [None]
  - STRESS [None]
  - DEHYDRATION [None]
  - FEMUR FRACTURE [None]
  - HAEMOGLOBIN DECREASED [None]
  - AUTOMATIC BLADDER [None]
  - MALAISE [None]
  - URINARY TRACT INFECTION [None]
  - HAEMATOCRIT DECREASED [None]
  - DEAFNESS NEUROSENSORY [None]
  - BREAST DISORDER [None]
  - GASTRITIS [None]
  - OVARIAN DISORDER [None]
  - PAIN IN EXTREMITY [None]
  - CORONARY ARTERY DISEASE [None]
